FAERS Safety Report 17596058 (Version 1)
Quarter: 2020Q1

REPORT INFORMATION
  Report Type: Report from Study
  Country: None (occurrence: NL)
  Receive Date: 20200330
  Receipt Date: 20200330
  Transmission Date: 20200409
  Serious: Yes (Other)
  Sender: FDA-Public Use
  Company Number: NL-ABBVIE-20K-114-3330298-00

PATIENT
  Sex: Female
  Weight: 82 kg

DRUGS (3)
  1. DUODOPA [Suspect]
     Active Substance: CARBIDOPA\LEVODOPA
     Indication: PARKINSON^S DISEASE
     Dosage: , MORNING 3.0, CONTINUOUS 4.6, EXTRA 2.0, NIGHT 3.3
     Route: 050
     Dates: start: 20120111
  2. DUODOPA [Suspect]
     Active Substance: CARBIDOPA\LEVODOPA
     Dosage: MD 3; CD 4.8; ED 2; CND 3.5 24 HOUR ADMINISTRATION
     Route: 050
  3. MOVICOLON [Concomitant]
     Active Substance: POLYETHYLENE GLYCOL 3350\POTASSIUM CHLORIDE\SODIUM BICARBONATE\SODIUM CHLORIDE
     Indication: ABNORMAL FAECES

REACTIONS (10)
  - Device issue [Unknown]
  - Dementia [Unknown]
  - Stoma site irritation [Unknown]
  - Cognitive disorder [Unknown]
  - Stoma site erythema [Unknown]
  - Deep brain stimulation [Unknown]
  - Musculoskeletal stiffness [Unknown]
  - Disorientation [Unknown]
  - Gait inability [Unknown]
  - On and off phenomenon [Unknown]
